FAERS Safety Report 12816439 (Version 2)
Quarter: 2017Q3

REPORT INFORMATION
  Report Type: Spontaneous
  Country: US (occurrence: US)
  Receive Date: 20161006
  Receipt Date: 20170929
  Transmission Date: 20171127
  Serious: No
  Sender: FDA-Public Use
  Company Number: US-NOVEN PHARMACEUTICALS, INC.-US2015001142

PATIENT

DRUGS (5)
  1. COMBIPATCH [Suspect]
     Active Substance: ESTRADIOL\NORETHINDRONE ACETATE
     Indication: NIGHT SWEATS
     Dosage: 0.05/0.14 MG, UNKNOWN
     Route: 062
     Dates: start: 2005
  2. COMBIPATCH [Suspect]
     Active Substance: ESTRADIOL\NORETHINDRONE ACETATE
     Dosage: 0.05/0.14 MG,UNK
     Route: 062
     Dates: start: 201703
  3. COMBIPATCH [Suspect]
     Active Substance: ESTRADIOL\NORETHINDRONE ACETATE
     Indication: HOT FLUSH
     Dosage: 0.05/0.14 MG, 2/WK
     Route: 062
     Dates: start: 2017, end: 201702
  4. COMBIPATCH [Suspect]
     Active Substance: ESTRADIOL\NORETHINDRONE ACETATE
     Indication: VAGINAL HAEMORRHAGE
     Dosage: CUTTING THE PATCH INTO HALF, UNKNOWN
     Route: 062
  5. COMBIPATCH [Suspect]
     Active Substance: ESTRADIOL\NORETHINDRONE ACETATE
     Indication: HORMONE REPLACEMENT THERAPY
     Dosage: 0.05/0.14 MG, 2/WK
     Route: 062
     Dates: end: 201701

REACTIONS (12)
  - Hyperhidrosis [Unknown]
  - Drug dose omission [Recovered/Resolved]
  - Irritability [Recovered/Resolved]
  - Breast disorder [Unknown]
  - Hot flush [Recovered/Resolved]
  - Malaise [Unknown]
  - Wrong technique in product usage process [Recovered/Resolved]
  - Weight increased [Unknown]
  - Off label use [Unknown]
  - Night sweats [Recovered/Resolved]
  - Insomnia [Unknown]
  - Headache [Unknown]

NARRATIVE: CASE EVENT DATE: 2017
